FAERS Safety Report 11072772 (Version 1)
Quarter: 2015Q2

REPORT INFORMATION
  Report Type: Report from Study
  Country: US (occurrence: US)
  Receive Date: 20150428
  Receipt Date: 20150428
  Transmission Date: 20150821
  Serious: Yes (Other)
  Sender: FDA-Public Use
  Company Number: US-SA-2014SA169716

PATIENT
  Age: 57 Year
  Sex: Female

DRUGS (13)
  1. CALCIUM [Concomitant]
     Active Substance: CALCIUM
     Indication: OSTEOPENIA
     Dates: start: 200601
  2. DIAZEPAM. [Concomitant]
     Active Substance: DIAZEPAM
     Indication: MULTIPLE SCLEROSIS
     Dates: start: 200609
  3. VITAMIN D3 [Concomitant]
     Active Substance: CHOLECALCIFEROL
     Indication: MULTIPLE SCLEROSIS
  4. XANAX [Concomitant]
     Active Substance: ALPRAZOLAM
     Indication: STRESS
     Dates: start: 201411
  5. XANAX [Concomitant]
     Active Substance: ALPRAZOLAM
     Indication: MULTIPLE SCLEROSIS
     Dates: start: 201411
  6. BACLOFEN. [Concomitant]
     Active Substance: BACLOFEN
     Indication: MULTIPLE SCLEROSIS
     Dates: start: 2006
  7. OMEGA 3 [Concomitant]
     Active Substance: OMEGA-3 FATTY ACIDS
  8. AUBAGIO [Suspect]
     Active Substance: TERIFLUNOMIDE
     Indication: MULTIPLE SCLEROSIS
     Route: 048
     Dates: start: 20140713, end: 20150306
  9. HIPREX [Concomitant]
     Active Substance: METHENAMINE HIPPURATE
     Indication: MULTIPLE SCLEROSIS
     Dosage: 1 GM; 1/2 3X
     Dates: start: 200904
  10. ALBUTEROL. [Concomitant]
     Active Substance: ALBUTEROL
     Indication: ASTHMA
  11. CYANOCOBALAMIN. [Concomitant]
     Active Substance: CYANOCOBALAMIN
     Indication: MULTIPLE SCLEROSIS
  12. DIAZEPAM. [Concomitant]
     Active Substance: DIAZEPAM
     Indication: ANXIETY
     Dates: start: 200609
  13. AMPYRA [Concomitant]
     Active Substance: DALFAMPRIDINE
     Indication: MULTIPLE SCLEROSIS
     Dates: start: 201409

REACTIONS (6)
  - Asthma [Recovering/Resolving]
  - Dyspnoea [Recovering/Resolving]
  - Loss of consciousness [Recovering/Resolving]
  - Weight decreased [Unknown]
  - Spirometry abnormal [Recovering/Resolving]
  - Alopecia [Unknown]

NARRATIVE: CASE EVENT DATE: 201411
